FAERS Safety Report 5695339-6 (Version None)
Quarter: 2008Q2

REPORT INFORMATION
  Report Type: 
  Country: None (occurrence: None)
  Receive Date: 20080404
  Receipt Date: 20080402
  Transmission Date: 20081010
  Serious: Yes (Hospitalization, Disabling)
  Sender: FDA-Public Use
  Company Number: US-MERCK-0710USA03058

PATIENT
  Age: 73 Year
  Sex: Female
  Weight: 64 kg

DRUGS (4)
  1. FOSAMAX [Suspect]
     Indication: OSTEOPENIA
     Route: 048
     Dates: start: 20010501, end: 20070301
  2. FOSAMAX [Suspect]
     Route: 048
     Dates: end: 20060101
  3. FOSAMAX [Suspect]
     Indication: OSTEOPOROSIS
     Route: 048
     Dates: start: 20010501, end: 20070301
  4. FOSAMAX [Suspect]
     Route: 048
     Dates: end: 20060101

REACTIONS (5)
  - CHEST PAIN [None]
  - DIVERTICULUM [None]
  - EPICONDYLITIS [None]
  - HYPOTHYROIDISM [None]
  - OSTEONECROSIS [None]
